FAERS Safety Report 5275864-2 (Version None)
Quarter: 2007Q1

REPORT INFORMATION
  Report Type: 
  Country: None (occurrence: None)
  Receive Date: 20061213
  Receipt Date: 20041005
  Transmission Date: 20070707
  Serious: Yes (Hospitalization)
  Sender: FDA-Public Use
  Company Number: 2004UW20804

PATIENT
  Age: 55 Year
  Sex: Female

DRUGS (1)
  1. SEROQUEL [Suspect]
     Dosage: 600 MG QD PO
     Route: 048

REACTIONS (1)
  - DYSKINESIA [None]
